FAERS Safety Report 6491105-2 (Version None)
Quarter: 2009Q4

REPORT INFORMATION
  Report Type: 
  Country: None (occurrence: None)
  Receive Date: 20091211
  Receipt Date: 20091203
  Transmission Date: 20100525
  Serious: Yes (Other)
  Sender: FDA-Public Use
  Company Number: US-PFIZER INC-2009306295

PATIENT
  Sex: Male

DRUGS (8)
  1. LYRICA [Suspect]
     Indication: NEUROPATHY PERIPHERAL
     Dosage: UNK
     Dates: start: 20070101, end: 20070101
  2. CHANTIX [Suspect]
     Indication: SMOKING CESSATION THERAPY
     Dosage: UNK
     Dates: start: 20070101, end: 20070101
  3. LIPITOR [Suspect]
     Indication: BLOOD CHOLESTEROL INCREASED
     Dosage: 40 MG, 1X/DAY
  4. ACTOS [Concomitant]
     Dosage: 15 MG, UNK
  5. COREG [Concomitant]
     Dosage: 6.25 MG, 2X/DAY
  6. AVAPRO [Concomitant]
     Dosage: 300 MG, UNK
  7. LORCET-HD [Concomitant]
     Dosage: 7.5 MG, 4X/DAY
  8. FENTANYL [Concomitant]
     Dosage: UNK
     Route: 062

REACTIONS (8)
  - ARTERIAL STENOSIS [None]
  - DYSPHAGIA [None]
  - HYPOKINESIA [None]
  - PHARYNGEAL OEDEMA [None]
  - SPEECH DISORDER [None]
  - SUICIDAL IDEATION [None]
  - SWOLLEN TONGUE [None]
  - TRANSIENT ISCHAEMIC ATTACK [None]
